FAERS Safety Report 8282410 (Version 2)
Quarter: 2013Q4

REPORT INFORMATION
  Report Type: Spontaneous
  Country: FR (occurrence: FR)
  Receive Date: 20111209
  Receipt Date: 20131028
  Transmission Date: 20140711
  Serious: Yes (Hospitalization, Disabling)
  Sender: FDA-Public Use
  Company Number: FR-GLAXOSMITHKLINE-B0708365A

PATIENT
  Age: 55 Year
  Sex: Male

DRUGS (7)
  1. AVANDAMET [Suspect]
     Indication: DIABETES MELLITUS
     Route: 048
     Dates: start: 2006
  2. MEDIATOR [Suspect]
     Indication: DIABETES MELLITUS
     Dosage: 450MG PER DAY
     Route: 048
     Dates: start: 200609, end: 200803
  3. GLIMEPIRIDE [Concomitant]
  4. ROSUVASTATIN CALCIUM [Concomitant]
  5. FUROSEMIDE [Concomitant]
  6. BROMAZEPAM [Concomitant]
  7. SPIRONOLACTONE [Concomitant]

REACTIONS (7)
  - Mitral valve disease [Recovered/Resolved with Sequelae]
  - Aortic valve disease [Recovered/Resolved with Sequelae]
  - Tricuspid valve incompetence [Recovered/Resolved with Sequelae]
  - Dyspnoea [Unknown]
  - Pulmonary arterial hypertension [Recovered/Resolved]
  - Coronary artery stenosis [Recovered/Resolved with Sequelae]
  - Cardiac failure [Recovered/Resolved]
